FAERS Safety Report 18485356 (Version 1)
Quarter: 2020Q4

REPORT INFORMATION
  Report Type: Spontaneous
  Country: US (occurrence: US)
  Receive Date: 20201109
  Receipt Date: 20201109
  Transmission Date: 20210114
  Serious: No
  Sender: FDA-Public Use
  Company Number: None

PATIENT
  Age: 60 Year
  Sex: Male
  Weight: 120 kg

DRUGS (19)
  1. CAPECITABINE. [Suspect]
     Active Substance: CAPECITABINE
     Indication: PANCREATIC CARCINOMA
     Route: 048
     Dates: start: 20201027
  2. HYDROXYZINE HCL [Concomitant]
     Active Substance: HYDROXYZINE HYDROCHLORIDE
  3. LISINOPRIL. [Concomitant]
     Active Substance: LISINOPRIL
  4. ACETAMINOPHEN. [Concomitant]
     Active Substance: ACETAMINOPHEN
  5. ATORVASTATIN CALCIUM. [Concomitant]
     Active Substance: ATORVASTATIN CALCIUM
  6. LAMOTRIGINE. [Concomitant]
     Active Substance: LAMOTRIGINE
  7. MIRTAZAPINE. [Concomitant]
     Active Substance: MIRTAZAPINE
  8. BUPROPION HCL ER [Concomitant]
     Active Substance: BUPROPION HYDROCHLORIDE
  9. CETIRIZINE HCL [Concomitant]
     Active Substance: CETIRIZINE HYDROCHLORIDE
  10. LIDOCAINE. [Concomitant]
     Active Substance: LIDOCAINE
  11. LISINOPRIL. [Concomitant]
     Active Substance: LISINOPRIL
  12. METFORMIN HYDROCHLORIDE. [Concomitant]
     Active Substance: METFORMIN HYDROCHLORIDE
  13. MIRALAX [Concomitant]
     Active Substance: POLYETHYLENE GLYCOL 3350
  14. PROCHLORPERAZINE MALEATE. [Concomitant]
     Active Substance: PROCHLORPERAZINE MALEATE
  15. NOVOLOG [Concomitant]
     Active Substance: INSULIN ASPART
  16. ONDANSETRON HCL [Concomitant]
     Active Substance: ONDANSETRON HYDROCHLORIDE
  17. GEMFIBROZIL. [Concomitant]
     Active Substance: GEMFIBROZIL
  18. LANTUS SOLOSTAR [Concomitant]
     Active Substance: INSULIN GLARGINE
  19. AUGMENTIN [Concomitant]
     Active Substance: AMOXICILLIN\CLAVULANATE POTASSIUM

REACTIONS (3)
  - Palmar-plantar erythrodysaesthesia syndrome [None]
  - Dry skin [None]
  - Blister [None]

NARRATIVE: CASE EVENT DATE: 20201028
